FAERS Safety Report 11768286 (Version 1)
Quarter: 2015Q4

REPORT INFORMATION
  Report Type: Spontaneous
  Country: JP (occurrence: JP)
  Receive Date: 20151123
  Receipt Date: 20151123
  Transmission Date: 20160304
  Serious: Yes (Hospitalization)
  Sender: FDA-Public Use
  Company Number: JP-PFIZER INC-2015329650

PATIENT
  Age: 89 Year
  Sex: Male
  Weight: 56.9 kg

DRUGS (13)
  1. BAYASPIRIN [Concomitant]
     Active Substance: ASPIRIN
     Dosage: 1 DF, 1X/DAY (IN THE MORNING)
     Route: 048
  2. REBAMIPIDE [Concomitant]
     Active Substance: REBAMIPIDE
     Dosage: 1 DF, 1X/DAY
     Route: 048
  3. JUVELA N [Concomitant]
     Active Substance: TOCOPHERYL NICOTINATE, D-.ALPHA.
     Dosage: 1 DF, 2X/DAY
     Route: 048
  4. SEIBULE [Concomitant]
     Active Substance: MIGLITOL
     Dosage: 1 DF, 2X/DAY (BEFORE MEALS)
     Route: 048
  5. TOVIAZ [Suspect]
     Active Substance: FESOTERODINE FUMARATE
     Dosage: 4 MG, 1X/DAY (IN THE MORNING)
     Route: 048
  6. MECOBALAMIN [Concomitant]
     Active Substance: METHYLCOBALAMIN
     Dosage: 1 DF, 2X/DAY
     Route: 048
  7. MICARDIS [Concomitant]
     Active Substance: TELMISARTAN
     Dosage: 0.25 G, 1X/DAY (IN THE EVENING)
     Route: 048
  8. EPADEL-S [Concomitant]
     Active Substance: ICOSAPENT ETHYL
     Dosage: 1 DF, 2X/DAY
     Route: 048
  9. TENELIA [Concomitant]
     Active Substance: CITALOPRAM HYDROBROMIDE
     Dosage: 1 DF, 1X/DAY (IN THE MORNING)
     Route: 048
  10. PLAVIX [Concomitant]
     Active Substance: CLOPIDOGREL BISULFATE
     Dosage: 1 DF, 1X/DAY (IN THE MORNING)
     Route: 048
  11. METGLUCO [Concomitant]
     Active Substance: METFORMIN HYDROCHLORIDE
     Dosage: 2 DF IN THE MORNING AND 1 DF IN THE EVENING
     Route: 048
  12. LIMAPROST ALFADEX [Concomitant]
     Active Substance: LIMAPROST
     Dosage: 3 DF, 2X/DAY
     Route: 048
  13. LOXOPROFEN SODIUM [Concomitant]
     Active Substance: LOXOPROFEN SODIUM
     Dosage: 1 DF, 3X/DAY
     Route: 048

REACTIONS (2)
  - Night sweats [Recovering/Resolving]
  - Spondylitic myelopathy [Unknown]

NARRATIVE: CASE EVENT DATE: 20150927
